FAERS Safety Report 9026618 (Version 1)
Quarter: 2013Q1

REPORT INFORMATION
  Report Type: Spontaneous
  Country: US (occurrence: None)
  Receive Date: 20130114
  Receipt Date: 20130114
  Transmission Date: 20140127
  Serious: Yes (Life-Threatening, Hospitalization)
  Sender: FDA-Public Use
  Company Number: None

PATIENT
  Age: 53 Year
  Sex: Male
  Weight: 65.77 kg

DRUGS (1)
  1. PAXIL [Suspect]
     Dosage: 40 ML 1X DAY ORAL
     Route: 048

REACTIONS (2)
  - Paranoia [None]
  - Hallucination [None]
